FAERS Safety Report 24608169 (Version 4)
Quarter: 2025Q2

REPORT INFORMATION
  Report Type: Spontaneous
  Country: US (occurrence: US)
  Receive Date: 20241112
  Receipt Date: 20250604
  Transmission Date: 20250717
  Serious: Yes (Hospitalization, Other)
  Sender: PFIZER
  Company Number: US-PFIZER INC-202400297052

PATIENT
  Age: 56 Year
  Sex: Female
  Weight: 151.04 kg

DRUGS (7)
  1. IBRANCE [Suspect]
     Active Substance: PALBOCICLIB
     Indication: Breast cancer stage IV
     Dates: start: 202406
  2. IBRANCE [Suspect]
     Active Substance: PALBOCICLIB
     Indication: Breast cancer metastatic
     Dates: start: 202407
  3. IBRANCE [Suspect]
     Active Substance: PALBOCICLIB
     Dates: start: 202408
  4. IBRANCE [Suspect]
     Active Substance: PALBOCICLIB
     Dates: start: 2024
  5. FULVESTRANT [Concomitant]
     Active Substance: FULVESTRANT
  6. XGEVA [Concomitant]
     Active Substance: DENOSUMAB
  7. OXYGEN [Concomitant]
     Active Substance: OXYGEN

REACTIONS (13)
  - Catheter site infection [Recovering/Resolving]
  - Nausea [Recovering/Resolving]
  - Fall [Recovering/Resolving]
  - Pulmonary oedema [Not Recovered/Not Resolved]
  - Breast cancer metastatic [Unknown]
  - Malignant neoplasm progression [Unknown]
  - Metastases to lung [Unknown]
  - Metastases to bone [Unknown]
  - Flatulence [Unknown]
  - White blood cell count decreased [Not Recovered/Not Resolved]
  - Weight decreased [Not Recovered/Not Resolved]
  - Alopecia [Not Recovered/Not Resolved]
  - Depressed mood [Not Recovered/Not Resolved]

NARRATIVE: CASE EVENT DATE: 20240101
